FAERS Safety Report 10032411 (Version 1)
Quarter: 2014Q1

REPORT INFORMATION
  Report Type: Spontaneous
  Country: CA (occurrence: None)
  Receive Date: 20140320
  Receipt Date: 20140320
  Transmission Date: 20141002
  Serious: Yes (Other)
  Sender: FDA-Public Use
  Company Number: 2014000075

PATIENT
  Age: 72 Year
  Sex: Female
  Weight: 63 kg

DRUGS (12)
  1. ACEON (PERINDOPRIL ERBUMINE) [Suspect]
     Indication: PRODUCT USED FOR UNKNOWN INDICATION
  2. HYDROCHLOROTHIAZIDE (HYDROCHLOROTHIAZIDE) [Suspect]
     Indication: PRODUCT USED FOR UNKNOWN INDICATION
  3. RITUXAN (RITUXIMAB) [Suspect]
     Indication: PRODUCT USED FOR UNKNOWN INDICATION
     Route: 042
  4. PARACETAMOL (PARACETAMOL) [Suspect]
  5. ALENDRONATE SODIUM (ALENDRONATE SODIUM) (ALENDRONATE SODIUM) [Concomitant]
  6. DIPHENHYDRAMINE HYDROCHLORIDE (DIPHENHYDRAMINE HYDROCHLORIDE) [Concomitant]
  7. FOLIC ACID (FOLIC ACID) [Concomitant]
  8. HYDROXYCHLOROQUINE SULFATE (HYDROXYCHLOROQUINE SULFATE) [Concomitant]
  9. MELOXICAM (MELOXICAM) [Concomitant]
  10. METHOTREXATE (METHOTREXATE) [Concomitant]
  11. PREDNISONE (PREDNISONE) [Concomitant]
  12. SULFASALAZINE (SULFASALAZINE) [Concomitant]

REACTIONS (5)
  - Blood pressure increased [None]
  - Oedema peripheral [None]
  - Drug ineffective [None]
  - Huerthle cell carcinoma [None]
  - Hypotension [None]
